FAERS Safety Report 20645782 (Version 1)
Quarter: 2022Q1

REPORT INFORMATION
  Report Type: Spontaneous
  Country: SK (occurrence: SK)
  Receive Date: 20220328
  Receipt Date: 20220328
  Transmission Date: 20220423
  Serious: Yes (Other)
  Sender: FDA-Public Use
  Company Number: SK-ABBVIE-22K-260-4319294-00

PATIENT
  Age: 61 Year
  Sex: Female

DRUGS (4)
  1. ADALIMUMAB [Suspect]
     Active Substance: ADALIMUMAB
     Indication: Rheumatoid arthritis
     Dosage: 40 MILLIGRAM
     Route: 058
     Dates: start: 202104
  2. SULFASALAZINE [Concomitant]
     Active Substance: SULFASALAZINE
     Indication: Product used for unknown indication
     Dosage: MAXIMAL DOSAGE UP TO 2 TABLET 2 TIMES
     Dates: start: 201702
  3. SULFASALAZINE [Concomitant]
     Active Substance: SULFASALAZINE
     Dosage: UNK
     Dates: start: 201911
  4. PREDNISONE [Concomitant]
     Active Substance: PREDNISONE
     Indication: Product used for unknown indication
     Dosage: UNK
     Dates: start: 201503

REACTIONS (3)
  - Rheumatoid arthritis [Unknown]
  - Drug ineffective [Unknown]
  - Arthritis [Unknown]

NARRATIVE: CASE EVENT DATE: 20220201
